FAERS Safety Report 18267265 (Version 1)
Quarter: 2020Q3

REPORT INFORMATION
  Report Type: Spontaneous
  Country: US (occurrence: US)
  Receive Date: 20200602
  Receipt Date: 20200602
  Transmission Date: 20201103
  Serious: No
  Sender: FDA-Public Use
  Company Number: None

PATIENT
  Age: 5 Decade
  Sex: Female

DRUGS (5)
  1. INTERFERON [Suspect]
     Active Substance: INTERFERON
     Indication: COVID-19
     Dosage: ROUTE: NEBULIZATION
     Route: 055
     Dates: start: 2020, end: 2020
  2. PIPERACILLIN. [Suspect]
     Active Substance: PIPERACILLIN SODIUM
     Indication: COVID-19
     Dates: start: 2020, end: 2020
  3. TAZOBACTAM [Suspect]
     Active Substance: TAZOBACTAM
     Indication: COVID-19
     Dates: start: 2020, end: 2020
  4. ARBIDOL (UMIFENOVIR) [Suspect]
     Active Substance: UMIFENOVIR
     Indication: COVID-19
     Route: 048
     Dates: start: 2020, end: 2020
  5. GLYCYRHHIZIN [Suspect]
     Active Substance: GLYCYRRHIZIN
     Indication: COVID-19

REACTIONS (1)
  - Off label use [None]
